FAERS Safety Report 10446758 (Version 1)
Quarter: 2014Q3

REPORT INFORMATION
  Report Type: Spontaneous
  Country: US (occurrence: US)
  Receive Date: 20140911
  Receipt Date: 20140911
  Transmission Date: 20150326
  Serious: Yes (Hospitalization)
  Sender: FDA-Public Use
  Company Number: 2014SP001044

PATIENT
  Age: 76 Year
  Sex: Female
  Weight: 67 kg

DRUGS (12)
  1. OMEPRAZOLE. [Concomitant]
     Active Substance: OMEPRAZOLE
     Dates: start: 20120731
  2. NAPROXEN. [Concomitant]
     Active Substance: NAPROXEN
     Dates: start: 20120821
  3. ENOXAPARIN [Concomitant]
     Active Substance: ENOXAPARIN
     Dates: start: 20120821
  4. IBUPROFEN /00109205/ [Concomitant]
     Active Substance: IBUPROFEN
     Dates: start: 20110807
  5. PROCHLORPERAZINE EDISYLATE. [Concomitant]
     Active Substance: PROCHLORPERAZINE EDISYLATE
     Dates: start: 20110807
  6. DOXORUBICIN [Suspect]
     Active Substance: DOXORUBICIN
     Indication: SARCOMA METASTATIC
     Route: 042
     Dates: start: 20120919, end: 20120920
  7. ATIVAN [Concomitant]
     Active Substance: LORAZEPAM
     Dates: start: 20120905, end: 20121004
  8. ONDANSETRON [Concomitant]
     Active Substance: ONDANSETRON
     Dates: start: 20120720
  9. DOXORUBICIN [Suspect]
     Active Substance: DOXORUBICIN
     Indication: SARCOMA METASTATIC
     Route: 042
     Dates: start: 20120717, end: 20120717
  10. NYSTATIN. [Concomitant]
     Active Substance: NYSTATIN
     Indication: ODYNOPHAGIA
     Dates: start: 20120905
  11. DEXAMETHASONE. [Concomitant]
     Active Substance: DEXAMETHASONE
     Dates: start: 20120912, end: 20121011
  12. COSOPT [Concomitant]
     Active Substance: DORZOLAMIDE HYDROCHLORIDE\TIMOLOL MALEATE
     Dates: start: 20120330

REACTIONS (7)
  - Pneumonitis [Recovered/Resolved]
  - Asthenia [Unknown]
  - Dyspnoea [Recovered/Resolved]
  - Oropharyngeal candidiasis [Recovered/Resolved]
  - Odynophagia [Recovered/Resolved]
  - Anaemia [Recovered/Resolved]
  - Weight decreased [Unknown]

NARRATIVE: CASE EVENT DATE: 20121005
